FAERS Safety Report 8458060-7 (Version None)
Quarter: 2012Q2

REPORT INFORMATION
  Report Type: 
  Country: None (occurrence: None)
  Receive Date: 20120622
  Receipt Date: 20120621
  Transmission Date: 20120825
  Serious: Yes (Other)
  Sender: FDA-Public Use
  Company Number: JP-JNJFOC-20120607422

PATIENT
  Sex: Male

DRUGS (2)
  1. DACARBAZINE [Suspect]
     Indication: ADENOMATOUS POLYPOSIS COLI
     Route: 065
  2. DOXORUBICIN HCL [Suspect]
     Indication: ADENOMATOUS POLYPOSIS COLI
     Route: 042

REACTIONS (2)
  - GASTROINTESTINAL DISORDER [None]
  - OFF LABEL USE [None]
